FAERS Safety Report 8103900-4 (Version None)
Quarter: 2012Q1

REPORT INFORMATION
  Report Type: 
  Country: None (occurrence: None)
  Receive Date: 20120201
  Receipt Date: 20120127
  Transmission Date: 20120608
  Serious: Yes (Disabling)
  Sender: FDA-Public Use
  Company Number: US-PFIZER INC-2012023415

PATIENT
  Sex: Male
  Weight: 63.492 kg

DRUGS (4)
  1. SPIRIVA [Concomitant]
     Indication: CHRONIC OBSTRUCTIVE PULMONARY DISEASE
     Dosage: UNK, DAILY
  2. PRISTIQ [Suspect]
     Indication: DEPRESSION
     Dosage: UNK
  3. PRISTIQ [Suspect]
     Indication: ANXIETY
  4. NEURONTIN [Suspect]
     Dosage: UNK

REACTIONS (1)
  - DIABETIC FOOT [None]
